FAERS Safety Report 12481579 (Version 1)
Quarter: 2016Q2

REPORT INFORMATION
  Report Type: Spontaneous
  Country: US (occurrence: US)
  Receive Date: 20160620
  Receipt Date: 20160620
  Transmission Date: 20160815
  Serious: Yes (Death, Other)
  Sender: FDA-Public Use
  Company Number: PHHY2016US083586

PATIENT
  Age: 16 Year
  Sex: Male

DRUGS (3)
  1. THIAMINE. [Concomitant]
     Active Substance: THIAMINE
     Indication: VITAMIN B1 DECREASED
     Dosage: 100 MG, QD
  2. FOSCARNET [Concomitant]
     Active Substance: FOSCARNET
     Indication: HUMAN HERPESVIRUS 6 INFECTION
     Route: 065
  3. LINEZOLID. [Suspect]
     Active Substance: LINEZOLID
     Indication: PRODUCT USED FOR UNKNOWN INDICATION
     Route: 065

REACTIONS (2)
  - Leukoencephalopathy [Fatal]
  - Lactic acidosis [Fatal]
